FAERS Safety Report 20900680 (Version 1)
Quarter: 2022Q2

REPORT INFORMATION
  Report Type: Spontaneous
  Country: US (occurrence: None)
  Receive Date: 20220531
  Receipt Date: 20220531
  Transmission Date: 20220721
  Serious: Yes (Hospitalization)
  Sender: FDA-Public Use
  Company Number: None

PATIENT
  Age: 68 Year
  Sex: Male

DRUGS (1)
  1. CAPECITABINE [Suspect]
     Active Substance: CAPECITABINE
     Dosage: 2000MG BID ORAL?
     Route: 048
     Dates: start: 202205

REACTIONS (5)
  - Urinary retention [None]
  - Malaise [None]
  - Back pain [None]
  - Flank pain [None]
  - Pain in extremity [None]

NARRATIVE: CASE EVENT DATE: 20220428
